FAERS Safety Report 5737346-0 (Version None)
Quarter: 2008Q2

REPORT INFORMATION
  Report Type: 
  Country: None (occurrence: None)
  Receive Date: 20080514
  Receipt Date: 20080509
  Transmission Date: 20081010
  Serious: Yes (Death)
  Sender: FDA-Public Use
  Company Number: US-GILEAD-2008-0016166

PATIENT
  Sex: Female
  Weight: 92.162 kg

DRUGS (16)
  1. LETAIRIS [Suspect]
     Indication: PULMONARY ARTERIAL HYPERTENSION
     Route: 048
     Dates: start: 20070904, end: 20080418
  2. NEXIUM [Concomitant]
     Route: 048
     Dates: start: 20070801
  3. CYCLOBENZAPRINE HCL [Concomitant]
     Route: 048
     Dates: start: 20070801
  4. ALBUTEROL SULFATE [Concomitant]
     Route: 055
  5. ALBUTEROL [Concomitant]
     Route: 055
     Dates: start: 20070801
  6. NEURONTIN [Concomitant]
     Route: 048
  7. SERTRALINE [Concomitant]
     Route: 048
     Dates: start: 20070801
  8. ZYRTEC [Concomitant]
     Route: 048
     Dates: start: 20070801
  9. ACETAMINOPHEN AND OXYCODONE HCL [Concomitant]
     Route: 048
     Dates: start: 20070801
  10. PREDNISONE TAB [Concomitant]
     Route: 048
     Dates: start: 20070801
  11. HYDROXYCHLOROQUINE SULFATE [Concomitant]
     Route: 048
     Dates: start: 20070801
  12. AZATHIOPRINE [Concomitant]
     Route: 048
     Dates: start: 20070801
  13. CALCIUM [Concomitant]
     Route: 048
     Dates: start: 20070801
  14. FOSAMAX [Concomitant]
     Route: 048
     Dates: start: 20070801
  15. METOCLOPRAMIDE [Concomitant]
     Route: 048
     Dates: start: 20070801
  16. FUROSEMIDE [Concomitant]
     Route: 048
     Dates: start: 20070801

REACTIONS (3)
  - MULTIPLE MYELOMA [None]
  - PULMONARY HYPERTENSION [None]
  - RESPIRATORY FAILURE [None]
